FAERS Safety Report 5048628-2 (Version None)
Quarter: 2006Q2

REPORT INFORMATION
  Report Type: 
  Country: None (occurrence: None)
  Receive Date: 20060601
  Receipt Date: 20060215
  Transmission Date: 20061013
  Serious: No
  Sender: FDA-Public Use
  Company Number: 2006PV008756

PATIENT
  Age: 52 Year
  Sex: Male
  Weight: 136.9863 kg

DRUGS (5)
  1. BYETTA [Suspect]
     Indication: DIABETES MELLITUS
     Dosage: 5 MCG;BID;SC
     Route: 058
     Dates: start: 20060113
  2. GLUCOPHAGE XL [Concomitant]
  3. AMARYL [Concomitant]
  4. NOVOLOG [Concomitant]
  5. 70/30 MIX [Concomitant]

REACTIONS (2)
  - CHILLS [None]
  - INJECTION SITE URTICARIA [None]
